FAERS Safety Report 10579861 (Version 2)
Quarter: 2014Q4

REPORT INFORMATION
  Report Type: Spontaneous
  Country: JP (occurrence: JP)
  Receive Date: 20141112
  Receipt Date: 20141226
  Transmission Date: 20150529
  Serious: No
  Sender: FDA-Public Use
  Company Number: JP-GLAXOSMITHKLINE-JP2014JPN018750

PATIENT
  Age: 26 Year
  Sex: Female
  Weight: 51 kg

DRUGS (2)
  1. LAMICTAL [Suspect]
     Active Substance: LAMOTRIGINE
     Indication: EPILEPSY
     Dosage: 25 MG, QOD
     Route: 048
     Dates: start: 20141024, end: 20141103
  2. VALPROATE SODIUM. [Suspect]
     Active Substance: VALPROATE SODIUM
     Indication: EPILEPSY
     Dosage: 200 MG, BID

REACTIONS (1)
  - Rash [Recovering/Resolving]

NARRATIVE: CASE EVENT DATE: 20141107
